FAERS Safety Report 10588785 (Version 2)
Quarter: 2015Q1

REPORT INFORMATION
  Report Type: Spontaneous
  Country: US (occurrence: US)
  Receive Date: 20141117
  Receipt Date: 20150119
  Transmission Date: 20150720
  Serious: Yes (Other)
  Sender: FDA-Public Use
  Company Number: US-ACTELION-A-US2014-107850

PATIENT
  Age: 67 Year
  Sex: Male

DRUGS (15)
  1. VIAGRA [Concomitant]
     Active Substance: SILDENAFIL CITRATE
  2. NIASPAN [Concomitant]
     Active Substance: NIACIN
  3. L-ARGININE [Concomitant]
     Active Substance: ARGININE
  4. MULTIVITAMIN [Concomitant]
     Active Substance: VITAMINS
  5. TARGRETIN [Concomitant]
     Active Substance: BEXAROTENE
     Dosage: UNK, QPM
     Route: 061
     Dates: start: 1999
  6. TARGRETIN [Concomitant]
     Active Substance: BEXAROTENE
     Dosage: 150 MG, BID
     Route: 048
     Dates: start: 1999
  7. LEVOTHYROXIN [Concomitant]
     Active Substance: LEVOTHYROXINE
  8. KOREAN GINSENG [Concomitant]
  9. CO-Q10-CHLORELLA [Concomitant]
  10. RESVERATROL [Concomitant]
     Active Substance: RESVERATROL
  11. VALCHLOR [Suspect]
     Active Substance: MECHLORETHAMINE
     Indication: MYCOSIS FUNGOIDES
     Dosage: UNK UNK, QAM
     Route: 061
     Dates: start: 20140521
  12. FISH OIL [Concomitant]
     Active Substance: FISH OIL
  13. TRIAMCINOLONE [Concomitant]
     Active Substance: TRIAMCINOLONE
     Dosage: UNK, QD PRN
  14. LIPITOR [Concomitant]
     Active Substance: ATORVASTATIN CALCIUM
  15. VALERIAN ROOT [Concomitant]
     Active Substance: VALERIAN

REACTIONS (3)
  - Skin exfoliation [Unknown]
  - Atrial fibrillation [Unknown]
  - Intertrigo [Unknown]

NARRATIVE: CASE EVENT DATE: 201409
